FAERS Safety Report 6034471-4 (Version None)
Quarter: 2009Q1

REPORT INFORMATION
  Report Type: 
  Country: None (occurrence: None)
  Receive Date: 20090108
  Receipt Date: 20081231
  Transmission Date: 20090719
  Serious: Yes (Hospitalization, Disabling)
  Sender: FDA-Public Use
  Company Number: 20085899

PATIENT
  Sex: Female

DRUGS (1)
  1. LIORESAL [Suspect]
     Indication: MUSCLE SPASTICITY
     Dosage: MCG,DAILY,INTRATHECAL
     Route: 037

REACTIONS (6)
  - COGNITIVE DISORDER [None]
  - HYPERTONIA [None]
  - NAUSEA [None]
  - PAIN [None]
  - PARAPLEGIA [None]
  - WITHDRAWAL SYNDROME [None]
